FAERS Safety Report 15815222 (Version 1)
Quarter: 2019Q1

REPORT INFORMATION
  Report Type: Spontaneous
  Country: JP (occurrence: JP)
  Receive Date: 20190112
  Receipt Date: 20190112
  Transmission Date: 20190417
  Serious: Yes (Death, Other)
  Sender: FDA-Public Use
  Company Number: JP-ACCORD-101072

PATIENT
  Age: 55 Year
  Sex: Female
  Weight: 51.7 kg

DRUGS (7)
  1. AMLODIPINE [Suspect]
     Active Substance: AMLODIPINE BESYLATE
     Route: 048
  2. BRATOGEN [Suspect]
     Active Substance: GLYBURIDE
     Route: 048
  3. INHIROCK [Concomitant]
     Active Substance: CILAZAPRIL ANHYDROUS
     Route: 048
  4. GLIBENCLAMIDE [Suspect]
     Active Substance: GLYBURIDE
     Route: 048
  5. DIART [Concomitant]
     Active Substance: AZOSEMIDE
     Route: 048
  6. LIPITOR [Concomitant]
     Active Substance: ATORVASTATIN CALCIUM
     Route: 048
  7. LASIX [Suspect]
     Active Substance: FUROSEMIDE
     Route: 048

REACTIONS (5)
  - Cardio-respiratory arrest [Fatal]
  - Overdose [Fatal]
  - Metabolic disorder [Fatal]
  - Hypoglycaemia [Fatal]
  - Cardiovascular insufficiency [Fatal]
